FAERS Safety Report 22197276 (Version 1)
Quarter: 2023Q2

REPORT INFORMATION
  Report Type: Spontaneous
  Country: AT (occurrence: AT)
  Receive Date: 20230411
  Receipt Date: 20230411
  Transmission Date: 20230721
  Serious: Yes (Hospitalization)
  Sender: FDA-Public Use
  Company Number: None

PATIENT
  Age: 28 Year
  Sex: Female

DRUGS (74)
  1. CIBINQO [Suspect]
     Active Substance: ABROCITINIB
     Indication: Product used for unknown indication
     Dosage: 200 MG, DAILY
  2. OLUMIANT [Suspect]
     Active Substance: BARICITINIB
     Indication: Dermatitis atopic
     Dosage: 4 MG, DAILY
     Dates: start: 202302
  3. OLUMIANT [Suspect]
     Active Substance: BARICITINIB
     Indication: Dermatitis atopic
     Dosage: 4 MG, DAILY
     Dates: start: 202302
  4. OLUMIANT [Suspect]
     Active Substance: BARICITINIB
     Indication: Dermatitis atopic
     Dosage: 4 MG, DAILY
     Dates: start: 202302
  5. OLUMIANT [Suspect]
     Active Substance: BARICITINIB
     Indication: Dermatitis atopic
     Dosage: 4 MG, DAILY
     Dates: start: 202302
  6. OLUMIANT [Suspect]
     Active Substance: BARICITINIB
     Indication: Dermatitis atopic
     Dosage: 4 MG, DAILY
     Dates: start: 202302
  7. OLUMIANT [Suspect]
     Active Substance: BARICITINIB
     Indication: Dermatitis atopic
     Dosage: 4 MG, DAILY
     Dates: start: 202302
  8. OLUMIANT [Suspect]
     Active Substance: BARICITINIB
     Indication: Dermatitis atopic
     Dosage: 4 MG, DAILY
     Dates: start: 202302
  9. OLUMIANT [Suspect]
     Active Substance: BARICITINIB
     Indication: Dermatitis atopic
     Dosage: 4 MG, DAILY
     Dates: start: 202302
  10. OLUMIANT [Suspect]
     Active Substance: BARICITINIB
     Indication: Dermatitis atopic
     Dosage: 4 MG, DAILY
     Dates: start: 202302
  11. OLUMIANT [Suspect]
     Active Substance: BARICITINIB
     Indication: Dermatitis atopic
     Dosage: 4 MG, DAILY
     Dates: start: 202302
  12. OLUMIANT [Suspect]
     Active Substance: BARICITINIB
     Indication: Dermatitis atopic
     Dosage: 4 MG, DAILY
     Dates: start: 202302
  13. OLUMIANT [Suspect]
     Active Substance: BARICITINIB
     Indication: Dermatitis atopic
     Dosage: 4 MG, DAILY
     Dates: start: 202302
  14. OLUMIANT [Suspect]
     Active Substance: BARICITINIB
     Indication: Dermatitis atopic
     Dosage: 4 MG, DAILY
     Dates: start: 202302
  15. OLUMIANT [Suspect]
     Active Substance: BARICITINIB
     Indication: Dermatitis atopic
     Dosage: 4 MG, DAILY
     Dates: start: 202302
  16. OLUMIANT [Suspect]
     Active Substance: BARICITINIB
     Indication: Dermatitis atopic
     Dosage: 4 MG, DAILY
     Dates: start: 202302
  17. OLUMIANT [Suspect]
     Active Substance: BARICITINIB
     Indication: Dermatitis atopic
     Dosage: 4 MG, DAILY
     Dates: start: 202302
  18. OLUMIANT [Suspect]
     Active Substance: BARICITINIB
     Indication: Dermatitis atopic
     Dosage: 4 MG, DAILY
     Dates: start: 202302
  19. OLUMIANT [Suspect]
     Active Substance: BARICITINIB
     Indication: Dermatitis atopic
     Dosage: 4 MG, DAILY
     Dates: start: 202302
  20. OLUMIANT [Suspect]
     Active Substance: BARICITINIB
     Indication: Dermatitis atopic
     Dosage: 4 MG, DAILY
     Dates: start: 202112, end: 20221221
  21. OLUMIANT [Suspect]
     Active Substance: BARICITINIB
     Indication: Dermatitis atopic
     Dosage: 4 MG, DAILY
     Dates: start: 202112, end: 20221221
  22. OLUMIANT [Suspect]
     Active Substance: BARICITINIB
     Indication: Dermatitis atopic
     Dosage: 4 MG, DAILY
     Dates: start: 202112, end: 20221221
  23. OLUMIANT [Suspect]
     Active Substance: BARICITINIB
     Indication: Dermatitis atopic
     Dosage: 4 MG, DAILY
     Dates: start: 202112, end: 20221221
  24. OLUMIANT [Suspect]
     Active Substance: BARICITINIB
     Indication: Dermatitis atopic
     Dosage: 4 MG, DAILY
     Dates: start: 202112, end: 20221221
  25. OLUMIANT [Suspect]
     Active Substance: BARICITINIB
     Indication: Dermatitis atopic
     Dosage: 4 MG, DAILY
     Dates: start: 202112, end: 20221221
  26. OLUMIANT [Suspect]
     Active Substance: BARICITINIB
     Indication: Dermatitis atopic
     Dosage: 4 MG, DAILY
     Dates: start: 202112, end: 20221221
  27. OLUMIANT [Suspect]
     Active Substance: BARICITINIB
     Indication: Dermatitis atopic
     Dosage: 4 MG, DAILY
     Dates: start: 202112, end: 20221221
  28. OLUMIANT [Suspect]
     Active Substance: BARICITINIB
     Indication: Dermatitis atopic
     Dosage: 4 MG, DAILY
     Dates: start: 202112, end: 20221221
  29. OLUMIANT [Suspect]
     Active Substance: BARICITINIB
     Indication: Dermatitis atopic
     Dosage: 4 MG, DAILY
     Dates: start: 202112, end: 20221221
  30. OLUMIANT [Suspect]
     Active Substance: BARICITINIB
     Indication: Dermatitis atopic
     Dosage: 4 MG, DAILY
     Dates: start: 202112, end: 20221221
  31. OLUMIANT [Suspect]
     Active Substance: BARICITINIB
     Indication: Dermatitis atopic
     Dosage: 4 MG, DAILY
     Dates: start: 202112, end: 20221221
  32. OLUMIANT [Suspect]
     Active Substance: BARICITINIB
     Indication: Dermatitis atopic
     Dosage: 4 MG, DAILY
     Dates: start: 202112, end: 20221221
  33. OLUMIANT [Suspect]
     Active Substance: BARICITINIB
     Indication: Dermatitis atopic
     Dosage: 4 MG, DAILY
     Dates: start: 202112, end: 20221221
  34. OLUMIANT [Suspect]
     Active Substance: BARICITINIB
     Indication: Dermatitis atopic
     Dosage: 4 MG, DAILY
     Dates: start: 202112, end: 20221221
  35. OLUMIANT [Suspect]
     Active Substance: BARICITINIB
     Indication: Dermatitis atopic
     Dosage: 4 MG, DAILY
     Dates: start: 202112, end: 20221221
  36. OLUMIANT [Suspect]
     Active Substance: BARICITINIB
     Indication: Dermatitis atopic
     Dosage: 4 MG, DAILY
     Dates: start: 202112, end: 20221221
  37. OLUMIANT [Suspect]
     Active Substance: BARICITINIB
     Indication: Dermatitis atopic
     Dosage: 4 MG, DAILY
     Dates: start: 202112, end: 20221221
  38. OLUMIANT [Suspect]
     Active Substance: BARICITINIB
     Indication: Dermatitis atopic
     Dosage: 4 MG, DAILY
     Dates: start: 202106, end: 202110
  39. OLUMIANT [Suspect]
     Active Substance: BARICITINIB
     Indication: Dermatitis atopic
     Dosage: 4 MG, DAILY
     Dates: start: 202106, end: 202110
  40. OLUMIANT [Suspect]
     Active Substance: BARICITINIB
     Indication: Dermatitis atopic
     Dosage: 4 MG, DAILY
     Dates: start: 202106, end: 202110
  41. OLUMIANT [Suspect]
     Active Substance: BARICITINIB
     Indication: Dermatitis atopic
     Dosage: 4 MG, DAILY
     Dates: start: 202106, end: 202110
  42. OLUMIANT [Suspect]
     Active Substance: BARICITINIB
     Indication: Dermatitis atopic
     Dosage: 4 MG, DAILY
     Dates: start: 202106, end: 202110
  43. OLUMIANT [Suspect]
     Active Substance: BARICITINIB
     Indication: Dermatitis atopic
     Dosage: 4 MG, DAILY
     Dates: start: 202106, end: 202110
  44. OLUMIANT [Suspect]
     Active Substance: BARICITINIB
     Indication: Dermatitis atopic
     Dosage: 4 MG, DAILY
     Dates: start: 202106, end: 202110
  45. OLUMIANT [Suspect]
     Active Substance: BARICITINIB
     Indication: Dermatitis atopic
     Dosage: 4 MG, DAILY
     Dates: start: 202106, end: 202110
  46. OLUMIANT [Suspect]
     Active Substance: BARICITINIB
     Indication: Dermatitis atopic
     Dosage: 4 MG, DAILY
     Dates: start: 202106, end: 202110
  47. OLUMIANT [Suspect]
     Active Substance: BARICITINIB
     Indication: Dermatitis atopic
     Dosage: 4 MG, DAILY
     Dates: start: 202106, end: 202110
  48. OLUMIANT [Suspect]
     Active Substance: BARICITINIB
     Indication: Dermatitis atopic
     Dosage: 4 MG, DAILY
     Dates: start: 202106, end: 202110
  49. OLUMIANT [Suspect]
     Active Substance: BARICITINIB
     Indication: Dermatitis atopic
     Dosage: 4 MG, DAILY
     Dates: start: 202106, end: 202110
  50. OLUMIANT [Suspect]
     Active Substance: BARICITINIB
     Indication: Dermatitis atopic
     Dosage: 4 MG, DAILY
     Dates: start: 202106, end: 202110
  51. OLUMIANT [Suspect]
     Active Substance: BARICITINIB
     Indication: Dermatitis atopic
     Dosage: 4 MG, DAILY
     Dates: start: 202106, end: 202110
  52. OLUMIANT [Suspect]
     Active Substance: BARICITINIB
     Indication: Dermatitis atopic
     Dosage: 4 MG, DAILY
     Dates: start: 202106, end: 202110
  53. OLUMIANT [Suspect]
     Active Substance: BARICITINIB
     Indication: Dermatitis atopic
     Dosage: 4 MG, DAILY
     Dates: start: 202106, end: 202110
  54. OLUMIANT [Suspect]
     Active Substance: BARICITINIB
     Indication: Dermatitis atopic
     Dosage: 4 MG, DAILY
     Dates: start: 202106, end: 202110
  55. OLUMIANT [Suspect]
     Active Substance: BARICITINIB
     Indication: Dermatitis atopic
     Dosage: 4 MG, DAILY
     Dates: start: 202106, end: 202110
  56. DEVICE [Suspect]
     Active Substance: DEVICE
     Indication: Eczema herpeticum
  57. METHOTREXATE SODIUM [Suspect]
     Active Substance: METHOTREXATE SODIUM
     Indication: Product used for unknown indication
     Dosage: 15 MG, WEEKLY (1/W)
     Dates: start: 202211
  58. TRALOKINUMAB [Suspect]
     Active Substance: TRALOKINUMAB
     Indication: Eczema herpeticum
     Dosage: 2 DOSAGE FORM, OTHER(EVERY 2 WEEKS)
     Dates: start: 202110
  59. TRALOKINUMAB [Suspect]
     Active Substance: TRALOKINUMAB
     Indication: Eczema herpeticum
     Dosage: 2 DOSAGE FORM, OTHER(EVERY 2 WEEKS)
     Dates: start: 202110
  60. TRALOKINUMAB [Suspect]
     Active Substance: TRALOKINUMAB
     Indication: Eczema herpeticum
     Dosage: 2 DOSAGE FORM, OTHER(EVERY 2 WEEKS)
     Dates: start: 202110
  61. TRALOKINUMAB [Suspect]
     Active Substance: TRALOKINUMAB
     Indication: Eczema herpeticum
     Dosage: 2 DOSAGE FORM, OTHER(EVERY 2 WEEKS)
     Dates: start: 202110
  62. TRALOKINUMAB [Suspect]
     Active Substance: TRALOKINUMAB
     Indication: Eczema herpeticum
     Dosage: 2 DOSAGE FORM, OTHER(EVERY 2 WEEKS)
     Dates: start: 202110
  63. TRALOKINUMAB [Suspect]
     Active Substance: TRALOKINUMAB
     Indication: Eczema herpeticum
     Dosage: 2 DOSAGE FORM, OTHER(EVERY 2 WEEKS)
     Dates: start: 202110
  64. TRALOKINUMAB [Suspect]
     Active Substance: TRALOKINUMAB
     Indication: Eczema herpeticum
     Dosage: 2 DOSAGE FORM, OTHER(EVERY 2 WEEKS)
     Dates: start: 202110
  65. TRALOKINUMAB [Suspect]
     Active Substance: TRALOKINUMAB
     Indication: Eczema herpeticum
     Dosage: 2 DOSAGE FORM, OTHER(EVERY 2 WEEKS)
     Dates: start: 202110
  66. TRALOKINUMAB [Suspect]
     Active Substance: TRALOKINUMAB
     Indication: Eczema herpeticum
     Dosage: 3 DOSAGE FORM, UNKNOWN
  67. TRALOKINUMAB [Suspect]
     Active Substance: TRALOKINUMAB
     Indication: Eczema herpeticum
     Dosage: 3 DOSAGE FORM, UNKNOWN
  68. TRALOKINUMAB [Suspect]
     Active Substance: TRALOKINUMAB
     Indication: Eczema herpeticum
     Dosage: 3 DOSAGE FORM, UNKNOWN
  69. TRALOKINUMAB [Suspect]
     Active Substance: TRALOKINUMAB
     Indication: Eczema herpeticum
     Dosage: 3 DOSAGE FORM, UNKNOWN
  70. TRALOKINUMAB [Suspect]
     Active Substance: TRALOKINUMAB
     Indication: Eczema herpeticum
     Dosage: 3 DOSAGE FORM, UNKNOWN
  71. TRALOKINUMAB [Suspect]
     Active Substance: TRALOKINUMAB
     Indication: Eczema herpeticum
     Dosage: 3 DOSAGE FORM, UNKNOWN
  72. TRALOKINUMAB [Suspect]
     Active Substance: TRALOKINUMAB
     Indication: Eczema herpeticum
     Dosage: 3 DOSAGE FORM, UNKNOWN
  73. TRALOKINUMAB [Suspect]
     Active Substance: TRALOKINUMAB
     Indication: Eczema herpeticum
     Dosage: 3 DOSAGE FORM, UNKNOWN
  74. PFIZER-BIONTECH COVID-19 VACCINE [Suspect]
     Active Substance: TOZINAMERAN
     Indication: COVID-19
     Dosage: UNK UNK, UNKNOWN
     Dates: start: 20211112

REACTIONS (18)
  - Asthma [Unknown]
  - Asthma [Unknown]
  - Oral herpes [Unknown]
  - Conjunctivitis [Unknown]
  - Asthma [Unknown]
  - Eczema herpeticum [Recovering/Resolving]
  - General physical condition abnormal [Unknown]
  - Oral herpes [Unknown]
  - Eczema herpeticum [Recovering/Resolving]
  - Oedema peripheral [Not Recovered/Not Resolved]
  - Oedema peripheral [Not Recovered/Not Resolved]
  - Product use in unapproved indication [Unknown]
  - Visual impairment [Unknown]
  - Infection [Unknown]
  - Infection [Unknown]
  - Oedema peripheral [Not Recovered/Not Resolved]
  - Infection [Unknown]
  - Oral herpes [Unknown]

NARRATIVE: CASE EVENT DATE: 20210601
